FAERS Safety Report 6530946-X (Version None)
Quarter: 2010Q1

REPORT INFORMATION
  Report Type: 
  Country: None (occurrence: None)
  Receive Date: 20100108
  Receipt Date: 20090701
  Transmission Date: 20100710
  Serious: No
  Sender: FDA-Public Use
  Company Number: A0795018A

PATIENT
  Age: 43 Year
  Sex: Male

DRUGS (3)
  1. LOVAZA [Suspect]
     Indication: BLOOD CHOLESTEROL INCREASED
     Dosage: 1CAP SINGLE DOSE
     Route: 048
     Dates: start: 20090601, end: 20090701
  2. ATENOLOL [Concomitant]
  3. CELEXA [Concomitant]

REACTIONS (1)
  - CHEST DISCOMFORT [None]
